FAERS Safety Report 12346190 (Version 2)
Quarter: 2016Q2

REPORT INFORMATION
  Report Type: Spontaneous
  Country: US (occurrence: US)
  Receive Date: 20160509
  Receipt Date: 20160623
  Transmission Date: 20160815
  Serious: Yes (Death)
  Sender: FDA-Public Use
  Company Number: US-PFIZER INC-2016225441

PATIENT
  Age: 85 Year
  Sex: Male
  Weight: 71 kg

DRUGS (2)
  1. RANITIDINE. [Concomitant]
     Active Substance: RANITIDINE
     Indication: ABDOMINAL DISCOMFORT
     Dosage: 150 MG, UNK
  2. INLYTA [Suspect]
     Active Substance: AXITINIB
     Indication: RENAL CANCER METASTATIC
     Dosage: 3 MG, 2X/DAY (THREE TABLETS TWICE A DAY I.E. EVERY 12 HOURS)
     Route: 048

REACTIONS (4)
  - Malaise [Unknown]
  - Pulmonary oedema [Fatal]
  - Dyspnoea [Unknown]
  - Nausea [Unknown]
